FAERS Safety Report 10213791 (Version 1)
Quarter: 2014Q2

REPORT INFORMATION
  Report Type: Spontaneous
  Country: GB (occurrence: None)
  Receive Date: 20140602
  Receipt Date: 20140602
  Transmission Date: 20141212
  Serious: No
  Sender: FDA-Public Use
  Company Number: None

PATIENT
  Age: 20 Year
  Sex: Female
  Weight: 65.77 kg

DRUGS (1)
  1. PRO EXPERT GUM PROTECT ORAL B [Suspect]
     Indication: DENTAL DISORDER PROPHYLAXIS
     Dosage: PEA SIZED AMOUNT
     Dates: start: 20140416, end: 20140516

REACTIONS (11)
  - Oral discomfort [None]
  - Glossodynia [None]
  - Lip blister [None]
  - Lip pain [None]
  - Lip dry [None]
  - Chapped lips [None]
  - Tongue discolouration [None]
  - Glossodynia [None]
  - Aphagia [None]
  - Dry mouth [None]
  - Middle insomnia [None]
